FAERS Safety Report 12261805 (Version 3)
Quarter: 2016Q4

REPORT INFORMATION
  Report Type: Report from Study
  Country: CA (occurrence: CA)
  Receive Date: 20160413
  Receipt Date: 20161010
  Transmission Date: 20170207
  Serious: Yes (Hospitalization, Other)
  Sender: FDA-Public Use
  Company Number: CA-ROCHE-1645616

PATIENT
  Age: 66 Year
  Sex: Male

DRUGS (15)
  1. ALLOPURINOL. [Concomitant]
     Active Substance: ALLOPURINOL
  2. METFORMIN [Concomitant]
     Active Substance: METFORMIN HYDROCHLORIDE
  3. TAMULOSIN [Concomitant]
     Active Substance: TAMSULOSIN
  4. RIVAROXABAN [Concomitant]
     Active Substance: RIVAROXABAN
  5. NIFEDIPINE. [Concomitant]
     Active Substance: NIFEDIPINE
  6. PRAMIPEXOLE. [Concomitant]
     Active Substance: PRAMIPEXOLE
  7. LEFLUNOMIDE. [Concomitant]
     Active Substance: LEFLUNOMIDE
  8. PRAMIPEXOLE. [Concomitant]
     Active Substance: PRAMIPEXOLE
  9. DIGOXIN-SPECIFIC ANTIBODY FRAGMENTS [Concomitant]
     Active Substance: DIGOXIN
  10. HYDROXYCHLOROQUINE [Concomitant]
     Active Substance: HYDROXYCHLOROQUINE
  11. ADVIL [Concomitant]
     Active Substance: IBUPROFEN
  12. ACTEMRA [Suspect]
     Active Substance: TOCILIZUMAB
     Indication: RHEUMATOID ARTHRITIS
     Route: 042
     Dates: start: 20150714, end: 20151119
  13. FLUOXETINE HCL [Concomitant]
     Active Substance: FLUOXETINE HYDROCHLORIDE
  14. RAMIPRIL. [Concomitant]
     Active Substance: RAMIPRIL
  15. PREGABALIN. [Concomitant]
     Active Substance: PREGABALIN

REACTIONS (22)
  - Localised infection [Not Recovered/Not Resolved]
  - Arthralgia [Not Recovered/Not Resolved]
  - Neuralgia [Not Recovered/Not Resolved]
  - Heart rate decreased [Unknown]
  - Arthritis [Not Recovered/Not Resolved]
  - Osteomyelitis [Unknown]
  - Nodule [Unknown]
  - Pain [Unknown]
  - Activities of daily living impaired [Unknown]
  - Emphysema [Not Recovered/Not Resolved]
  - Pulmonary mass [Unknown]
  - Musculoskeletal pain [Unknown]
  - Sensory loss [Not Recovered/Not Resolved]
  - Nodule [Not Recovered/Not Resolved]
  - Fatigue [Unknown]
  - Blister infected [Unknown]
  - Rheumatoid arthritis [Not Recovered/Not Resolved]
  - C-reactive protein increased [Unknown]
  - Oxygen saturation decreased [Unknown]
  - Insomnia [Unknown]
  - Drug ineffective [Unknown]
  - Musculoskeletal stiffness [Not Recovered/Not Resolved]

NARRATIVE: CASE EVENT DATE: 201512
